FAERS Safety Report 17225078 (Version 1)
Quarter: 2020Q1

REPORT INFORMATION
  Report Type: Spontaneous
  Country: US (occurrence: US)
  Receive Date: 20200101
  Receipt Date: 20200101
  Transmission Date: 20200409
  Serious: Yes (Other)
  Sender: FDA-Public Use
  Company Number: None

PATIENT
  Age: 67 Year
  Sex: Female
  Weight: 85.2 kg

DRUGS (9)
  1. FUROSEMIDE. [Concomitant]
     Active Substance: FUROSEMIDE
  2. HEPARIN SUBQ [Concomitant]
  3. PRAVASTATIN. [Concomitant]
     Active Substance: PRAVASTATIN
  4. DAPTOMYCIN. [Suspect]
     Active Substance: DAPTOMYCIN
     Indication: OSTEOMYELITIS
     Route: 041
     Dates: start: 20191121, end: 20191205
  5. REGADENOSON 0.4MG [Concomitant]
     Dates: start: 20191121, end: 20191121
  6. TOPIRAMATE 50MG [Concomitant]
     Active Substance: TOPIRAMATE
  7. GABAPENTIN. [Concomitant]
     Active Substance: GABAPENTIN
  8. AZTREONAM 2G [Concomitant]
     Dates: start: 20191121, end: 20191124
  9. CARVEDILOL 12.5MG [Concomitant]
     Active Substance: CARVEDILOL

REACTIONS (3)
  - Drug level increased [None]
  - Renal impairment [None]
  - Rhabdomyolysis [None]

NARRATIVE: CASE EVENT DATE: 20191205
